FAERS Safety Report 6402663-8 (Version None)
Quarter: 2009Q4

REPORT INFORMATION
  Report Type: 
  Country: None (occurrence: None)
  Receive Date: 20091009
  Receipt Date: 20090930
  Transmission Date: 20100525
  Serious: Yes (Other)
  Sender: FDA-Public Use
  Company Number: ADR34282009

PATIENT
  Age: 81 Year
  Sex: Female

DRUGS (9)
  1. CIPROFLOXACIN [Suspect]
     Dosage: 1 G, ORAL
     Route: 048
     Dates: start: 20071213, end: 20080114
  2. WARFARIN SODIUM [Concomitant]
  3. AMLODIPINE [Concomitant]
  4. CARBOCISTINE [Concomitant]
  5. DIGOXIN [Concomitant]
  6. FUROSEMIDE [Concomitant]
  7. METFORMIN HCL [Concomitant]
  8. RAMIPRIL [Concomitant]
  9. SIMVASTATIN [Concomitant]

REACTIONS (1)
  - INTERNATIONAL NORMALISED RATIO INCREASED [None]
